FAERS Safety Report 7719383-X (Version None)
Quarter: 2011Q3

REPORT INFORMATION
  Report Type: 
  Country: None (occurrence: None)
  Receive Date: 20110825
  Receipt Date: 20110809
  Transmission Date: 20111222
  Serious: Yes (Disabling)
  Sender: FDA-Public Use
  Company Number: 2011MA011597

PATIENT
  Age: 42 Year
  Sex: Male

DRUGS (2)
  1. LIDOCAINE [Suspect]
     Indication: INJECTION
     Dosage: 8 ML;1%;IBUR
  2. TRIAMCINOLONE ACETONIDE [Suspect]
     Indication: INJECTION
     Dosage: 2 ML;IBUR

REACTIONS (3)
  - SUDDEN VISUAL LOSS [None]
  - SCOTOMA [None]
  - CHORIORETINOPATHY [None]
